FAERS Safety Report 17590288 (Version 1)
Quarter: 2020Q1

REPORT INFORMATION
  Report Type: Spontaneous
  Country: US (occurrence: US)
  Receive Date: 20200326
  Receipt Date: 20200326
  Transmission Date: 20200409
  Serious: Yes (Other)
  Sender: FDA-Public Use
  Company Number: None

PATIENT
  Age: 45 Year
  Sex: Female
  Weight: 94.5 kg

DRUGS (8)
  1. TIZANADINE [Concomitant]
     Active Substance: TIZANIDINE
  2. AMITRIPTYLINE [Concomitant]
     Active Substance: AMITRIPTYLINE
  3. ADDERALL [Concomitant]
     Active Substance: AMPHETAMINE ASPARTATE\AMPHETAMINE SULFATE\DEXTROAMPHETAMINE SACCHARATE\DEXTROAMPHETAMINE SULFATE
  4. CYCLOBENZAPRINE. [Concomitant]
     Active Substance: CYCLOBENZAPRINE
  5. PORTIA BIRTH CONTROL [Concomitant]
  6. SERTRALINE [Concomitant]
     Active Substance: SERTRALINE HYDROCHLORIDE
  7. BUSPIARINE [Concomitant]
  8. CRYODERM (HERBALS\MENTHOL) [Suspect]
     Active Substance: HERBALS\MENTHOL
     Indication: MUSCLE SPASMS
     Dosage: ?          QUANTITY:1 ROLL ON;?
     Route: 061
     Dates: start: 20200325, end: 20200326

REACTIONS (3)
  - Skin warm [None]
  - Application site pain [None]
  - Paraesthesia [None]

NARRATIVE: CASE EVENT DATE: 20200326
